FAERS Safety Report 16221879 (Version 1)
Quarter: 2019Q2

REPORT INFORMATION
  Report Type: Spontaneous
  Country: US (occurrence: US)
  Receive Date: 20190422
  Receipt Date: 20190422
  Transmission Date: 20190711
  Serious: Yes (Other)
  Sender: FDA-Public Use
  Company Number: US-SA-2019SA108556

PATIENT
  Sex: Female

DRUGS (1)
  1. LANTUS SOLOSTAR [Suspect]
     Active Substance: INSULIN GLARGINE
     Indication: DIABETES MELLITUS
     Dosage: 10 U, HS
     Route: 065

REACTIONS (6)
  - Visual impairment [Unknown]
  - Product storage error [Unknown]
  - Macular degeneration [Unknown]
  - Cough [Unknown]
  - Retinopathy [Unknown]
  - Temporal arteritis [Unknown]
